FAERS Safety Report 10997274 (Version 1)
Quarter: 2015Q2

REPORT INFORMATION
  Report Type: Spontaneous
  Country: US (occurrence: US)
  Receive Date: 20150408
  Receipt Date: 20150408
  Transmission Date: 20150821
  Serious: Yes (Other)
  Sender: FDA-Public Use
  Company Number: US-PFIZER INC-2015113336

PATIENT
  Age: 59 Year
  Sex: Male
  Weight: 73.1 kg

DRUGS (2)
  1. SUTENT [Suspect]
     Active Substance: SUNITINIB MALATE
     Indication: RENAL FAILURE
     Dosage: 50 MG, 1X/DAY
     Dates: start: 20150302, end: 20150323
  2. COZAAR [Concomitant]
     Active Substance: LOSARTAN POTASSIUM
     Dosage: UNK, 1X/DAY

REACTIONS (3)
  - Product use issue [Unknown]
  - Cerebral haemorrhage [Recovered/Resolved]
  - Inflammation [Unknown]

NARRATIVE: CASE EVENT DATE: 20150326
